FAERS Safety Report 19117494 (Version 2)
Quarter: 2021Q2

REPORT INFORMATION
  Report Type: Report from Study
  Country: US (occurrence: US)
  Receive Date: 20210409
  Receipt Date: 20210412
  Transmission Date: 20210717
  Serious: Yes (Hospitalization)
  Sender: FDA-Public Use
  Company Number: US-ROCHE-2803367

PATIENT
  Age: 87 Year
  Sex: Male
  Weight: 105.7 kg

DRUGS (17)
  1. COMBIGAN [Concomitant]
     Active Substance: BRIMONIDINE TARTRATE\TIMOLOL MALEATE
  2. CABOZANTINIB [Suspect]
     Active Substance: CABOZANTINIB
     Indication: HORMONE-REFRACTORY PROSTATE CANCER
     Dosage: DATE OF MOST RECENT DOSE OF CABOZANTINIB PRIOR TO EVENT ONSET: 23/MAR/2021?DATE OF MOST RECENT DOSE
     Route: 048
     Dates: start: 20210304
  3. ATORVASTATIN [Concomitant]
     Active Substance: ATORVASTATIN
  4. LOSARTAN POTASSIUM. [Concomitant]
     Active Substance: LOSARTAN POTASSIUM
  5. ASPIRIN. [Concomitant]
     Active Substance: ASPIRIN
  6. ATEZOLIZUMAB. [Suspect]
     Active Substance: ATEZOLIZUMAB
     Indication: HORMONE-REFRACTORY PROSTATE CANCER
     Route: 042
     Dates: start: 20210304
  7. OMEPRAZOLE. [Concomitant]
     Active Substance: OMEPRAZOLE
  8. SODIUM BICARBONATE. [Concomitant]
     Active Substance: SODIUM BICARBONATE
  9. LATANOPROST. [Concomitant]
     Active Substance: LATANOPROST
  10. TRESIBA [Concomitant]
     Active Substance: INSULIN DEGLUDEC
  11. CALCIUM CITRATE [Concomitant]
     Active Substance: CALCIUM CITRATE
  12. ELIQUIS [Concomitant]
     Active Substance: APIXABAN
  13. CARVEDILOL. [Concomitant]
     Active Substance: CARVEDILOL
  14. LEUPROLIDE [Concomitant]
     Active Substance: LEUPROLIDE
  15. LEVOTHYROXINE SODIUM. [Concomitant]
     Active Substance: LEVOTHYROXINE SODIUM
  16. VITAMIN D3 [Concomitant]
     Active Substance: CHOLECALCIFEROL
  17. LASIX [Concomitant]
     Active Substance: FUROSEMIDE

REACTIONS (2)
  - Confusional state [Not Recovered/Not Resolved]
  - Fatigue [Not Recovered/Not Resolved]

NARRATIVE: CASE EVENT DATE: 20210325
